FAERS Safety Report 6711666-5 (Version None)
Quarter: 2010Q2

REPORT INFORMATION
  Report Type: 
  Country: None (occurrence: None)
  Receive Date: 20100505
  Receipt Date: 20100426
  Transmission Date: 20101027
  Serious: Yes (Other)
  Sender: FDA-Public Use
  Company Number: CA-JNJFOC-20100406894

PATIENT
  Age: 41 Year
  Sex: Female
  Weight: 52.16 kg

DRUGS (2)
  1. MOTRIN IB [Suspect]
     Indication: MYALGIA
     Route: 048
  2. MOTRIN IB [Suspect]
     Indication: ARTHRALGIA
     Route: 048

REACTIONS (5)
  - CONVULSION [None]
  - DYSARTHRIA [None]
  - OEDEMA PERIPHERAL [None]
  - SWELLING [None]
  - TREMOR [None]
